FAERS Safety Report 8553831-0 (Version None)
Quarter: 2012Q3

REPORT INFORMATION
  Report Type: 
  Country: None (occurrence: None)
  Receive Date: 20120719
  Receipt Date: 20120704
  Transmission Date: 20120928
  Serious: Yes (Hospitalization)
  Sender: FDA-Public Use
  Company Number: 2012US-57057

PATIENT

DRUGS (6)
  1. PANTOPRAZOLE [Suspect]
     Indication: PROPHYLAXIS
     Dosage: 40 MG, BID, ORAL
     Route: 048
  2. CLOPIDOGREL [Concomitant]
  3. ASPIRIN (ACETHYLSALICYLIC ACID) [Concomitant]
  4. ENOXAPARIN SODIUM [Concomitant]
  5. PANTOPRAZOLE [Suspect]
     Indication: PROPHYLAXIS
     Dosage: 40MG, SUBCUTANEOUS
     Route: 058
  6. TIROFIBAN (TIROFIBAN) [Concomitant]

REACTIONS (1)
  - ANGINA PECTORIS [None]
